FAERS Safety Report 21996381 (Version 1)
Quarter: 2023Q1

REPORT INFORMATION
  Report Type: Spontaneous
  Country: US (occurrence: US)
  Receive Date: 20230215
  Receipt Date: 20230215
  Transmission Date: 20230417
  Serious: No
  Sender: FDA-Public Use
  Company Number: US-MYLANLABS-2023M1014802

PATIENT
  Sex: Male

DRUGS (1)
  1. CYSTAGON [Suspect]
     Active Substance: CYSTEAMINE BITARTRATE
     Indication: Metabolic disorder
     Dosage: 8 DOSAGE FORM, QD (3 CAPSULE IN MORNING, 2 CAPSULE IN AFTERNOON, 3 CAPSULE AT BEDTIME)
     Route: 048
     Dates: start: 202110

REACTIONS (1)
  - Visual impairment [Unknown]
